FAERS Safety Report 5019691-X (Version None)
Quarter: 2006Q2

REPORT INFORMATION
  Report Type: 
  Country: None (occurrence: None)
  Receive Date: 20060601
  Receipt Date: 20060522
  Transmission Date: 20061013
  Serious: Yes (Hospitalization, Other)
  Sender: FDA-Public Use
  Company Number: 2006067514

PATIENT
  Age: 58 Year
  Sex: Female

DRUGS (1)
  1. CELEBREX [Suspect]
     Indication: ILL-DEFINED DISORDER
     Dosage: 200 MG (200 MG, 1 IN 1 D), UNKNOWN
     Route: 065
     Dates: start: 20020101

REACTIONS (7)
  - ACUTE MYOCARDIAL INFARCTION [None]
  - CARDIAC FAILURE CONGESTIVE [None]
  - CONDITION AGGRAVATED [None]
  - CORONARY ARTERY OCCLUSION [None]
  - GALLBLADDER OPERATION [None]
  - POST PROCEDURAL COMPLICATION [None]
  - PULMONARY OEDEMA [None]
